FAERS Safety Report 20209662 (Version 1)
Quarter: 2021Q4

REPORT INFORMATION
  Report Type: Spontaneous
  Country: TR (occurrence: TR)
  Receive Date: 20211221
  Receipt Date: 20211221
  Transmission Date: 20220304
  Serious: No
  Sender: FDA-Public Use
  Company Number: TR-LUPIN PHARMACEUTICALS INC.-2021-24343

PATIENT
  Age: 30 Year
  Sex: Female

DRUGS (2)
  1. METHYLPREDNISOLONE [Suspect]
     Active Substance: METHYLPREDNISOLONE
     Indication: Bell^s palsy
     Dosage: 1 MILLIGRAM/KILOGRAM, 1 IN 3 DAYS, WITH DOSE REDUCTION FOR 02 WEEKS
     Route: 048
  2. DEXAMETHASONE [Suspect]
     Active Substance: DEXAMETHASONE
     Indication: Bell^s palsy
     Dosage: 8 MG/2 ML DEXAMETHASONE; 1 IN 2 DAYS; 6 DOSES
     Route: 065

REACTIONS (1)
  - Off label use [Unknown]
